FAERS Safety Report 8472516-2 (Version None)
Quarter: 2012Q2

REPORT INFORMATION
  Report Type: 
  Country: None (occurrence: None)
  Receive Date: 20120627
  Receipt Date: 20111227
  Transmission Date: 20120825
  Serious: No
  Sender: FDA-Public Use
  Company Number: US-AMGEN-USASP2011069163

PATIENT
  Age: 58 Year
  Sex: Female
  Weight: 63.492 kg

DRUGS (2)
  1. INTERFERON [Concomitant]
     Indication: HEPATITIS C
  2. PROCRIT [Suspect]
     Indication: ANAEMIA
     Dosage: 40 UNIT, QWK
     Dates: start: 20111215

REACTIONS (1)
  - URINARY TRACT INFECTION [None]
